FAERS Safety Report 9901895 (Version 1)
Quarter: 2014Q1

REPORT INFORMATION
  Report Type: Spontaneous
  Country: JP (occurrence: JP)
  Receive Date: 20140217
  Receipt Date: 20140217
  Transmission Date: 20141002
  Serious: Yes (Other)
  Sender: FDA-Public Use
  Company Number: JP-GLAXOSMITHKLINE-B0968880A

PATIENT
  Age: 60 Year
  Sex: Male

DRUGS (3)
  1. ALLERMIST [Suspect]
     Indication: RHINITIS ALLERGIC
     Route: 045
     Dates: start: 20130510
  2. MEDROL [Concomitant]
     Route: 048
  3. TACROLIMUS HYDRATE [Concomitant]
     Route: 065

REACTIONS (2)
  - Empyema [Not Recovered/Not Resolved]
  - Rhinitis [Not Recovered/Not Resolved]
